FAERS Safety Report 12263371 (Version 1)
Quarter: 2016Q2

REPORT INFORMATION
  Report Type: Spontaneous
  Country: US (occurrence: None)
  Receive Date: 20160412
  Receipt Date: 20160412
  Transmission Date: 20160815
  Serious: Yes (Hospitalization, Other)
  Sender: FDA-Public Use
  Company Number: None

PATIENT
  Age: 59 Year
  Sex: Female
  Weight: 129.28 kg

DRUGS (19)
  1. CITALOPRAM [Concomitant]
     Active Substance: CITALOPRAM HYDROBROMIDE
  2. MULTIVITAMIN [Concomitant]
     Active Substance: VITAMINS
  3. METFORMIN [Concomitant]
     Active Substance: METFORMIN HYDROCHLORIDE
  4. CHOLECALCIFEROL [Concomitant]
     Active Substance: CHOLECALCIFEROL
  5. VITAMIN D [Concomitant]
     Active Substance: CHOLECALCIFEROL
  6. HUMULIN NOS [Concomitant]
     Active Substance: INSULIN HUMAN
  7. LISINOPRIL. [Concomitant]
     Active Substance: LISINOPRIL
  8. FAMOTIDINE. [Concomitant]
     Active Substance: FAMOTIDINE
  9. LEVOTHYROXIN [Concomitant]
     Active Substance: LEVOTHYROXINE
  10. VICTOZA [Concomitant]
     Active Substance: LIRAGLUTIDE
  11. MAGNESIUM [Concomitant]
     Active Substance: MAGNESIUM
  12. ASPIRIN. [Concomitant]
     Active Substance: ASPIRIN
  13. INVOKANA [Suspect]
     Active Substance: CANAGLIFLOZIN
     Indication: WEIGHT DECREASED
     Route: 048
     Dates: start: 20141108, end: 20141223
  14. ZETIA [Concomitant]
     Active Substance: EZETIMIBE
  15. ASCORBIC ACID. [Concomitant]
     Active Substance: ASCORBIC ACID
  16. FISH OIL [Concomitant]
     Active Substance: FISH OIL
  17. SELENIUM [Concomitant]
     Active Substance: SELENIUM
  18. XANAX [Concomitant]
     Active Substance: ALPRAZOLAM
  19. VITAMIN C [Concomitant]
     Active Substance: ASCORBIC ACID

REACTIONS (12)
  - Dizziness [None]
  - Encephalopathy [None]
  - Confusional state [None]
  - Fungal infection [None]
  - Impaired work ability [None]
  - Memory impairment [None]
  - Seizure [None]
  - Dehydration [None]
  - Paraesthesia oral [None]
  - Feeling abnormal [None]
  - Mental impairment [None]
  - Catatonia [None]

NARRATIVE: CASE EVENT DATE: 20141220
